FAERS Safety Report 5136139-5 (Version None)
Quarter: 2006Q4

REPORT INFORMATION
  Report Type: 
  Country: None (occurrence: None)
  Receive Date: 20061027
  Receipt Date: 20060822
  Transmission Date: 20070319
  Serious: Yes (Hospitalization)
  Sender: FDA-Public Use
  Company Number: US-BAYER-200613570BCC

PATIENT
  Age: 89 Year
  Sex: Female
  Weight: 52 kg

DRUGS (2)
  1. BAYER EXTRA STRENGTH BACK + BODY PAIN [Suspect]
     Indication: PAIN
     Dosage: UNIT DOSE: 500 MG
     Route: 048
     Dates: start: 20040101
  2. LOVASTATIN [Concomitant]

REACTIONS (4)
  - FALL [None]
  - HAEMATEMESIS [None]
  - ULCER HAEMORRHAGE [None]
  - UNEVALUABLE EVENT [None]
